FAERS Safety Report 4292159-4 (Version None)
Quarter: 2004Q1

REPORT INFORMATION
  Report Type: 
  Country: None (occurrence: None)
  Receive Date: 20040211
  Receipt Date: 20031222
  Transmission Date: 20041129
  Serious: No
  Sender: FDA-Public Use
  Company Number: US-GLAXOSMITHKLINE-A0443910A

PATIENT
  Age: 61 Year
  Sex: Male

DRUGS (1)
  1. LAMICTAL [Suspect]

REACTIONS (1)
  - HYPERSENSITIVITY [None]
